FAERS Safety Report 5517445-9 (Version None)
Quarter: 2007Q4

REPORT INFORMATION
  Report Type: 
  Country: None (occurrence: None)
  Receive Date: 20071114
  Receipt Date: 20071108
  Transmission Date: 20080405
  Serious: Yes (Other)
  Sender: FDA-Public Use
  Company Number: CA-ASTRAZENECA-2007UW26046

PATIENT
  Age: 60 Year
  Sex: Male

DRUGS (17)
  1. XYLOCAINE [Suspect]
     Route: 047
  2. ALPHAGAN [Suspect]
     Route: 047
  3. CYCLOPENTOLATE HYDROCHLORIDE [Suspect]
     Route: 047
  4. KETOROLAC [Suspect]
     Route: 047
  5. MIOCHOL [Suspect]
  6. NEOSPORIN [Suspect]
     Route: 047
  7. PHENYLEPHRINE HYDROCHLORIDE [Suspect]
     Route: 047
  8. TETRACAINE [Suspect]
     Route: 047
  9. TOBRADEX [Suspect]
     Route: 047
  10. TROPICAMIDE [Suspect]
     Route: 047
  11. VANCOMYCIN [Suspect]
     Route: 047
  12. ZYMAR [Suspect]
     Route: 047
  13. ACCUPRIL [Concomitant]
  14. ETROXIN [Concomitant]
  15. LIPITOR [Concomitant]
  16. NOVO-HYDRAZIDE [Concomitant]
  17. RATIO-METFORMIN [Concomitant]

REACTIONS (2)
  - EYE DISORDER [None]
  - INFLAMMATION [None]
